FAERS Safety Report 12901221 (Version 1)
Quarter: 2016Q4

REPORT INFORMATION
  Report Type: Spontaneous
  Country: CH (occurrence: CH)
  Receive Date: 20161101
  Receipt Date: 20161101
  Transmission Date: 20170207
  Serious: Yes (Hospitalization)
  Sender: FDA-Public Use
  Company Number: PHHY2016CH148879

PATIENT
  Sex: Male

DRUGS (12)
  1. SINOTROM [Concomitant]
     Indication: PRODUCT USED FOR UNKNOWN INDICATION
     Dosage: UNK
     Route: 048
  2. ADALAT [Concomitant]
     Active Substance: NIFEDIPINE
     Indication: PRODUCT USED FOR UNKNOWN INDICATION
     Dosage: 20 MG, UNK
     Route: 048
  3. METFIN [Concomitant]
     Active Substance: METFORMIN HYDROCHLORIDE
     Indication: PRODUCT USED FOR UNKNOWN INDICATION
     Dosage: 850 MG, UNK
     Route: 048
  4. ONBREZ BREEZHALER [Concomitant]
     Active Substance: INDACATEROL
     Indication: PRODUCT USED FOR UNKNOWN INDICATION
     Dosage: 0.15 MG, UNK
     Route: 055
  5. PEMZEK [Concomitant]
     Indication: PRODUCT USED FOR UNKNOWN INDICATION
     Dosage: 16 MG, UNK
     Route: 048
  6. SPIRIVA [Concomitant]
     Active Substance: TIOTROPIUM BROMIDE MONOHYDRATE
     Indication: PRODUCT USED FOR UNKNOWN INDICATION
     Route: 055
  7. VOLTAREN [Suspect]
     Active Substance: DICLOFENAC SODIUM
     Indication: PRODUCT USED FOR UNKNOWN INDICATION
     Route: 054
     Dates: start: 20160920, end: 20160921
  8. ASPIRIN. [Concomitant]
     Active Substance: ASPIRIN
     Indication: PRODUCT USED FOR UNKNOWN INDICATION
     Dosage: 100 MG, UNK
     Route: 048
  9. SORTIS [Concomitant]
     Active Substance: ATORVASTATIN
     Indication: PRODUCT USED FOR UNKNOWN INDICATION
     Dosage: 40 MG, UNK
     Route: 048
  10. LASIX [Concomitant]
     Active Substance: FUROSEMIDE
     Indication: PRODUCT USED FOR UNKNOWN INDICATION
     Dosage: 40 MG, UNK
     Route: 048
  11. CONCOR [Concomitant]
     Active Substance: BISOPROLOL FUMARATE
     Indication: PRODUCT USED FOR UNKNOWN INDICATION
     Dosage: 2.5 MG, UNK
     Route: 048
  12. FLUCETIN [Concomitant]
     Indication: PRODUCT USED FOR UNKNOWN INDICATION
     Dosage: 20 MG, UNK
     Route: 048

REACTIONS (2)
  - Anuria [Recovered/Resolved]
  - Renal tubular necrosis [Recovered/Resolved]

NARRATIVE: CASE EVENT DATE: 20160921
